FAERS Safety Report 13291658 (Version 1)
Quarter: 2017Q1

REPORT INFORMATION
  Report Type: Spontaneous
  Country: US (occurrence: US)
  Receive Date: 20170302
  Receipt Date: 20170302
  Transmission Date: 20170428
  Serious: No
  Sender: FDA-Public Use
  Company Number: US-PERRIGO-16US014905

PATIENT
  Sex: Male

DRUGS (2)
  1. LOPERAMIDE HYDROCHLORIDE. [Suspect]
     Active Substance: LOPERAMIDE HYDROCHLORIDE
     Indication: DIARRHOEA
     Dosage: UNKNOWN, UNKNOWN
     Route: 048
     Dates: start: 201602, end: 201602
  2. LOPERAMIDE HYDROCHLORIDE. [Suspect]
     Active Substance: LOPERAMIDE HYDROCHLORIDE
     Dosage: TOTAL OF 30 TO 40 MG, QD
     Route: 048
     Dates: start: 201602

REACTIONS (5)
  - Abdominal pain upper [Unknown]
  - Drug dependence [Unknown]
  - Incorrect drug administration duration [Unknown]
  - Euphoric mood [Unknown]
  - Overdose [Unknown]

NARRATIVE: CASE EVENT DATE: 201602
